FAERS Safety Report 14427944 (Version 2)
Quarter: 2018Q1

REPORT INFORMATION
  Report Type: Spontaneous
  Country: US (occurrence: US)
  Receive Date: 20180123
  Receipt Date: 20180212
  Transmission Date: 20180509
  Serious: Yes (Other)
  Sender: FDA-Public Use
  Company Number: US-SUNOVION-2018SUN000192

PATIENT
  Age: 44 Year
  Sex: Female
  Weight: 131.7 kg

DRUGS (1)
  1. LATUDA [Suspect]
     Active Substance: LURASIDONE HYDROCHLORIDE
     Indication: BIPOLAR DISORDER
     Dosage: 20 MG, QD
     Route: 048
     Dates: start: 20180109, end: 20180114

REACTIONS (6)
  - Throat irritation [Unknown]
  - Swelling face [Unknown]
  - Hypersensitivity [Unknown]
  - Eyelid disorder [Unknown]
  - Rash [Unknown]
  - Lip swelling [Unknown]

NARRATIVE: CASE EVENT DATE: 20180110
